FAERS Safety Report 4531469-X (Version None)
Quarter: 2004Q4

REPORT INFORMATION
  Report Type: 
  Country: None (occurrence: None)
  Receive Date: 20041217
  Receipt Date: 20041217
  Transmission Date: 20050328
  Serious: Yes (Other)
  Sender: FDA-Public Use
  Company Number: None

PATIENT
  Age: 42 Year
  Sex: Male
  Weight: 151.955 kg

DRUGS (3)
  1. VANCOMYCIN [Suspect]
     Indication: ENDOCARDITIS
     Dosage: 1500 MG IV Q 24 HRS
     Route: 042
     Dates: start: 20041214, end: 20041216
  2. GENTAMYCIN [Suspect]
     Dosage: 220 MG IV Q 24 HRS
     Route: 042
     Dates: start: 20041214, end: 20041216
  3. CLAFORAN [Concomitant]

REACTIONS (2)
  - EAR DISORDER [None]
  - HEARING IMPAIRED [None]
